FAERS Safety Report 25571609 (Version 1)
Quarter: 2025Q3

REPORT INFORMATION
  Report Type: Spontaneous
  Country: US (occurrence: None)
  Receive Date: 20250716
  Receipt Date: 20250716
  Transmission Date: 20251021
  Serious: Yes (Death)
  Sender: FDA-CTU
  Company Number: None

PATIENT
  Age: 61 Year
  Sex: Female

DRUGS (19)
  1. TADALAFIL [Suspect]
     Active Substance: TADALAFIL
     Indication: Pulmonary arterial hypertension
     Dosage: 20 MG BID ORAL
     Route: 048
     Dates: start: 20210104, end: 20250623
  2. UPTRAVI [Suspect]
     Active Substance: SELEXIPAG
  3. RITUXAN [Suspect]
     Active Substance: RITUXIMAB
  4. APIXABAN [Suspect]
     Active Substance: APIXABAN
  5. ERYTHROPOIETIN [Concomitant]
     Active Substance: ERYTHROPOIETIN
  6. BUMETANIDE [Concomitant]
     Active Substance: BUMETANIDE
  7. FERROUS SULFATE [Concomitant]
     Active Substance: FERROUS SULFATE
  8. MELATONIN [Concomitant]
     Active Substance: MELATONIN
  9. SENNA [Concomitant]
     Active Substance: SENNOSIDES
  10. GABAPENTIN [Concomitant]
     Active Substance: GABAPENTIN
  11. MIDODRINE [Concomitant]
     Active Substance: MIDODRINE
  12. SPIRONOLACTONE [Concomitant]
     Active Substance: SPIRONOLACTONE
  13. ATOVAQUONE [Concomitant]
     Active Substance: ATOVAQUONE
  14. DRONEDARONE [Concomitant]
     Active Substance: DRONEDARONE
  15. APIXABAN [Concomitant]
     Active Substance: APIXABAN
  16. PANTOPRAZOLE [Concomitant]
     Active Substance: PANTOPRAZOLE
  17. CETIRIZINE [Concomitant]
     Active Substance: CETIRIZINE HYDROCHLORIDE
  18. MIRALAX [Concomitant]
     Active Substance: POLYETHYLENE GLYCOL 3350
  19. IRON DEXTAN [Concomitant]

REACTIONS (1)
  - Cardiac failure congestive [None]

NARRATIVE: CASE EVENT DATE: 20250620
